FAERS Safety Report 4976115-6 (Version None)
Quarter: 2006Q2

REPORT INFORMATION
  Report Type: 
  Country: None (occurrence: None)
  Receive Date: 20060411
  Receipt Date: 20060410
  Transmission Date: 20061013
  Serious: Yes (Hospitalization)
  Sender: FDA-Public Use
  Company Number: 2006S1001476

PATIENT
  Age: 51 Year
  Sex: Female
  Weight: 61.2356 kg

DRUGS (3)
  1. TAMOXIFEN CITRATE [Suspect]
     Dosage: 20 MG;QD;ORAL
     Route: 048
     Dates: start: 20060207, end: 20060208
  2. TAMOXIFEN CITRATE [Suspect]
     Dosage: 20 MG;QD;ORAL
     Route: 048
     Dates: start: 20060213, end: 20060214
  3. GLUCOSAMINE [Concomitant]

REACTIONS (2)
  - SMALL INTESTINAL OBSTRUCTION [None]
  - VOLVULUS [None]
